FAERS Safety Report 25862489 (Version 2)
Quarter: 2025Q4

REPORT INFORMATION
  Report Type: Spontaneous
  Country: CN (occurrence: CN)
  Receive Date: 20250930
  Receipt Date: 20251013
  Transmission Date: 20260118
  Serious: Yes (Other)
  Sender: NOVARTIS
  Company Number: CN-002147023-NVSC2025CN146029

PATIENT
  Age: 77 Year
  Sex: Female
  Weight: 62.5 kg

DRUGS (1)
  1. SACUBITRIL\VALSARTAN [Suspect]
     Active Substance: SACUBITRIL\VALSARTAN
     Indication: Hypertension
     Dosage: 50 MG, BID
     Route: 048
     Dates: start: 20250712, end: 20250816

REACTIONS (3)
  - Renal failure [Unknown]
  - Blood potassium increased [Recovering/Resolving]
  - Blood pressure systolic increased [Unknown]

NARRATIVE: CASE EVENT DATE: 20250815
